FAERS Safety Report 15665211 (Version 3)
Quarter: 2019Q2

REPORT INFORMATION
  Report Type: Spontaneous
  Country: US (occurrence: US)
  Receive Date: 20181128
  Receipt Date: 20190626
  Transmission Date: 20190711
  Serious: Yes (Hospitalization, Other)
  Sender: FDA-Public Use
  Company Number: US-PFIZER INC-2018485713

PATIENT
  Age: 34 Year
  Sex: Male

DRUGS (7)
  1. METRONIDAZOLE. [Concomitant]
     Active Substance: METRONIDAZOLE
     Indication: PNEUMOCYSTIS JIROVECII PNEUMONIA
     Dosage: UNK
  2. GENTAMICIN. [Concomitant]
     Active Substance: GENTAMICIN
     Indication: PNEUMOCYSTIS JIROVECII PNEUMONIA
     Dosage: UNK
  3. SULFAMETHOXAZOLE/TRIMETHOPRIM [Suspect]
     Active Substance: SULFAMETHOXAZOLE\TRIMETHOPRIM
     Indication: PNEUMOCYSTIS JIROVECII PNEUMONIA
     Dosage: 1 DF, 2X/DAY (1 DS TABLET TWICE DAILY)
  4. SULFAMETHOXAZOLE/TRIMETHOPRIM [Suspect]
     Active Substance: SULFAMETHOXAZOLE\TRIMETHOPRIM
     Indication: DIARRHOEA
     Dosage: 1 DF, UNK (ONE ADDITIONAL DS TABLET)
  5. SULFAMETHOXAZOLE/TRIMETHOPRIM [Suspect]
     Active Substance: SULFAMETHOXAZOLE\TRIMETHOPRIM
     Dosage: UNK (AT DOSES APPROPRIATE FOR THE TREATMENT OF PCP)
  6. CEFTRIAXONE. [Concomitant]
     Active Substance: CEFTRIAXONE
     Indication: PNEUMOCYSTIS JIROVECII PNEUMONIA
     Dosage: UNK
  7. ERYTHROMYCIN. [Concomitant]
     Active Substance: ERYTHROMYCIN
     Indication: PNEUMOCYSTIS JIROVECII PNEUMONIA
     Dosage: UNK

REACTIONS (13)
  - Acute kidney injury [Recovered/Resolved]
  - Leukopenia [Recovered/Resolved]
  - Hepatic enzyme increased [Recovered/Resolved]
  - Hypotension [Recovered/Resolved]
  - Lung infiltration [Recovered/Resolved]
  - Pyrexia [Recovered/Resolved]
  - Hypoxia [Recovered/Resolved]
  - Conjunctivitis [Unknown]
  - Rash [Unknown]
  - Chills [Unknown]
  - Fatigue [Unknown]
  - Dyspepsia [Unknown]
  - Shock [Recovered/Resolved]
